FAERS Safety Report 14959691 (Version 1)
Quarter: 2018Q2

REPORT INFORMATION
  Report Type: Spontaneous
  Country: US (occurrence: US)
  Receive Date: 20180531
  Receipt Date: 20180531
  Transmission Date: 20180711
  Serious: Yes (Other)
  Sender: FDA-Public Use
  Company Number: US-NOVOPROD-602507

PATIENT
  Age: 81 Year
  Sex: Male

DRUGS (2)
  1. LEVEMIR [Suspect]
     Active Substance: INSULIN DETEMIR
     Indication: TYPE 2 DIABETES MELLITUS
     Dosage: 64 U, UNK
     Route: 058
     Dates: start: 201609
  2. NOVOLOG [Suspect]
     Active Substance: INSULIN ASPART
     Indication: TYPE 2 DIABETES MELLITUS
     Dosage: 4-6 UNITS
     Route: 058
     Dates: start: 201610

REACTIONS (2)
  - Neoplasm malignant [Recovering/Resolving]
  - Blood glucose increased [Unknown]
